FAERS Safety Report 8458464-2 (Version None)
Quarter: 2012Q2

REPORT INFORMATION
  Report Type: 
  Country: None (occurrence: None)
  Receive Date: 20120622
  Receipt Date: 20120612
  Transmission Date: 20120825
  Serious: No
  Sender: FDA-Public Use
  Company Number: JP-SANOFI-AVENTIS-2012SA009469

PATIENT
  Age: 87 Year
  Sex: Female

DRUGS (4)
  1. CLINDAMYCIN HCL [Suspect]
     Route: 048
     Dates: start: 20120125, end: 20120207
  2. LASIX [Suspect]
     Route: 048
     Dates: start: 20120131, end: 20120213
  3. TANNALBIN [Concomitant]
     Route: 048
     Dates: start: 20120105
  4. ADSORBIN [Concomitant]
     Route: 048
     Dates: start: 20120105

REACTIONS (2)
  - TONGUE DISCOLOURATION [None]
  - EOSINOPHIL COUNT INCREASED [None]
